FAERS Safety Report 4627461-7 (Version None)
Quarter: 2005Q2

REPORT INFORMATION
  Report Type: 
  Country: None (occurrence: None)
  Receive Date: 20050405
  Receipt Date: 20020328
  Transmission Date: 20051028
  Serious: Yes (Hospitalization)
  Sender: FDA-Public Use
  Company Number: JP-MERCK-0204USA00201

PATIENT
  Age: 32 Year
  Sex: Female
  Weight: 98 kg

DRUGS (3)
  1. COSMEGEN [Suspect]
     Route: 042
     Dates: start: 20020218
  2. COSMEGEN [Suspect]
     Route: 042
     Dates: start: 20020304
  3. COSMEGEN [Suspect]
     Route: 042
     Dates: start: 20020318, end: 20020322

REACTIONS (5)
  - DRUG EXPOSURE DURING PREGNANCY [None]
  - PLATELET COUNT DECREASED [None]
  - PYREXIA [None]
  - SEPSIS [None]
  - WHITE BLOOD CELL COUNT DECREASED [None]
